FAERS Safety Report 11875291 (Version 4)
Quarter: 2016Q1

REPORT INFORMATION
  Report Type: Spontaneous
  Country: EG (occurrence: EG)
  Receive Date: 20151229
  Receipt Date: 20160201
  Transmission Date: 20160526
  Serious: Yes (Death, Hospitalization)
  Sender: FDA-Public Use
  Company Number: EG-ELI_LILLY_AND_COMPANY-EG201512008087

PATIENT
  Age: 66 Year
  Sex: Female
  Weight: 66 kg

DRUGS (3)
  1. MAREVAN [Interacting]
     Active Substance: WARFARIN SODIUM
     Indication: ANTICOAGULANT THERAPY
     Dosage: 3 MG, UNKNOWN
     Route: 048
     Dates: start: 201509
  2. CYMBALTA [Suspect]
     Active Substance: DULOXETINE HYDROCHLORIDE
     Indication: DIABETIC NEUROPATHY
     Dosage: 60 MG, QD
     Route: 048
     Dates: start: 20151216
  3. MAREVAN [Interacting]
     Active Substance: WARFARIN SODIUM
     Indication: ARRHYTHMIA

REACTIONS (6)
  - International normalised ratio increased [Recovering/Resolving]
  - Atrial fibrillation [Recovering/Resolving]
  - Drug interaction [Unknown]
  - Cardiac failure [Fatal]
  - Renal failure [Fatal]
  - Urine output decreased [Recovering/Resolving]

NARRATIVE: CASE EVENT DATE: 20151217
